FAERS Safety Report 13727131 (Version 2)
Quarter: 2017Q4

REPORT INFORMATION
  Report Type: Report from Study
  Country: US (occurrence: BR)
  Receive Date: 20170707
  Receipt Date: 20171103
  Transmission Date: 20180320
  Serious: Yes (Other)
  Sender: FDA-Public Use
  Company Number: US-SUNOVION-2017SUN002918

PATIENT
  Sex: Male

DRUGS (1)
  1. INDACATEROL AND GLYCOPYRROLATE [Suspect]
     Active Substance: GLYCOPYRROLATE\INDACATEROL MALEATE
     Indication: EMPHYSEMA
     Dosage: UNKNOWN
     Route: 055

REACTIONS (5)
  - Weight decreased [Unknown]
  - Anxiety [Unknown]
  - Productive cough [Unknown]
  - Dysphagia [Unknown]
  - Sputum discoloured [Unknown]
